FAERS Safety Report 10830598 (Version 1)
Quarter: 2015Q1

REPORT INFORMATION
  Report Type: Spontaneous
  Country: US (occurrence: US)
  Receive Date: 20150219
  Receipt Date: 20150219
  Transmission Date: 20150721
  Serious: Yes (Other)
  Sender: FDA-Public Use
  Company Number: US-PURDUE-USA-2014-0117864

PATIENT
  Sex: Male

DRUGS (4)
  1. BUTRANS [Suspect]
     Active Substance: BUPRENORPHINE
     Indication: PAIN
     Dosage: 20 MCG/HR, WEEKLY
     Route: 062
     Dates: start: 20140920
  2. BUTRANS [Suspect]
     Active Substance: BUPRENORPHINE
     Dosage: 20 MCG/HR, WEEKLY
     Route: 062
     Dates: start: 2013, end: 20140919
  3. CELEBREX [Concomitant]
     Active Substance: CELECOXIB
     Indication: PRODUCT USED FOR UNKNOWN INDICATION
  4. BUTRANS [Suspect]
     Active Substance: BUPRENORPHINE
     Indication: HEADACHE
     Dosage: 20 MCG/HR, WEEKLY
     Route: 062
     Dates: start: 2013

REACTIONS (8)
  - Shoulder operation [Unknown]
  - Application site pruritus [Recovering/Resolving]
  - Nausea [Unknown]
  - Wrong technique in drug usage process [Unknown]
  - Dyspnoea exertional [Unknown]
  - Application site rash [Unknown]
  - Product adhesion issue [Unknown]
  - Drug ineffective [Unknown]
